FAERS Safety Report 9411205 (Version 1)
Quarter: 2013Q3

REPORT INFORMATION
  Report Type: Spontaneous
  Country: US (occurrence: US)
  Receive Date: 20130722
  Receipt Date: 20130722
  Transmission Date: 20140515
  Serious: Yes (Other)
  Sender: FDA-Public Use
  Company Number: US-AMGEN-USASP2013049774

PATIENT
  Age: 75 Year
  Sex: Female

DRUGS (1)
  1. PROLIA [Suspect]
     Indication: OSTEOPOROSIS

REACTIONS (5)
  - Haemorrhage [Unknown]
  - Blood pressure abnormal [Unknown]
  - Blood count abnormal [Unknown]
  - Infection [Recovering/Resolving]
  - Pain in extremity [Unknown]
